FAERS Safety Report 8793486 (Version 4)
Quarter: 2012Q4

REPORT INFORMATION
  Report Type: 
  Country: GR (occurrence: GR)
  Receive Date: 20120918
  Receipt Date: 20121129
  Transmission Date: 20130627
  Serious: Yes (Other)
  Sender: FDA-Public Use
  Company Number: PHHY2012GR074566

PATIENT
  Sex: Male

DRUGS (2)
  1. GILENYA [Suspect]
     Indication: MULTIPLE SCLEROSIS
     Dosage: UNK UKN, UNK
     Route: 048
     Dates: start: 201203
  2. TYSABRI [Suspect]

REACTIONS (12)
  - Central nervous system lesion [Recovering/Resolving]
  - Optic neuritis [Recovering/Resolving]
  - Phobia [Unknown]
  - Bacterial infection [Recovering/Resolving]
  - Multiple sclerosis relapse [Unknown]
  - Hearing impaired [Recovering/Resolving]
  - Gait disturbance [Recovering/Resolving]
  - Hypoaesthesia [Recovering/Resolving]
  - Micturition disorder [Not Recovered/Not Resolved]
  - Movement disorder [Not Recovered/Not Resolved]
  - Depression [Unknown]
  - Drug ineffective [Unknown]
